FAERS Safety Report 6409420-7 (Version None)
Quarter: 2009Q4

REPORT INFORMATION
  Report Type: 
  Country: None (occurrence: None)
  Receive Date: 20091019
  Receipt Date: 20091019
  Transmission Date: 20100525
  Serious: Yes (Life-Threatening, Hospitalization)
  Sender: FDA-Public Use
  Company Number: None

PATIENT
  Sex: Male
  Weight: 83.6 kg

DRUGS (10)
  1. RAPAMUNE [Suspect]
     Indication: LIVER TRANSPLANT
     Dosage: ALTERNATE 1 MG AND 2 MG DAILY PO  (MONTHS)
     Route: 048
  2. METHOTREXATE [Concomitant]
  3. EPO [Concomitant]
  4. CALCITRIOL [Concomitant]
  5. PRILOSEC [Concomitant]
  6. METOPROLOL [Concomitant]
  7. DRISDOL [Concomitant]
  8. GLIPIZIDE [Concomitant]
  9. CALCIUM [Concomitant]
  10. JANUVIA [Concomitant]

REACTIONS (1)
  - ACUTE HEPATIC FAILURE [None]
